FAERS Safety Report 16703457 (Version 3)
Quarter: 2019Q4

REPORT INFORMATION
  Report Type: Spontaneous
  Country: US (occurrence: US)
  Receive Date: 20190814
  Receipt Date: 20191203
  Transmission Date: 20200122
  Serious: No
  Sender: FDA-Public Use
  Company Number: US-009507513-1908USA005591

PATIENT
  Age: 24 Year
  Sex: Female
  Weight: 55.78 kg

DRUGS (3)
  1. AMITIZA [Concomitant]
     Active Substance: LUBIPROSTONE
     Dosage: UNK
  2. NEXPLANON [Suspect]
     Active Substance: ETONOGESTREL
     Indication: CONTRACEPTION
     Dosage: UNK
     Route: 059
     Dates: start: 20190318, end: 2019
  3. NEXPLANON [Suspect]
     Active Substance: ETONOGESTREL
     Dosage: UNK
     Route: 059
     Dates: start: 2016, end: 20190318

REACTIONS (7)
  - Discomfort [Unknown]
  - Complication associated with device [Recovered/Resolved]
  - Paraesthesia [Unknown]
  - Pain in extremity [Unknown]
  - Implant site hypersensitivity [Unknown]
  - Pain [Unknown]
  - Implant site hypoaesthesia [Unknown]

NARRATIVE: CASE EVENT DATE: 2019
